FAERS Safety Report 6330077-8 (Version None)
Quarter: 2009Q3

REPORT INFORMATION
  Report Type: 
  Country: None (occurrence: None)
  Receive Date: 20090827
  Receipt Date: 20070620
  Transmission Date: 20100115
  Serious: Yes (Other)
  Sender: FDA-Public Use
  Company Number: US-ASTRAZENECA-2006UW27782

PATIENT
  Age: 5519 Day
  Sex: Male
  Weight: 113.4 kg

DRUGS (17)
  1. SEROQUEL [Suspect]
     Indication: BIPOLAR DISORDER
     Route: 048
     Dates: start: 20030101
  2. SEROQUEL [Suspect]
     Indication: SCHIZOPHRENIA
     Route: 048
     Dates: start: 20030101
  3. SEROQUEL [Suspect]
     Dosage: 25 MG TO 200 MG
     Route: 048
     Dates: start: 20030114
  4. SEROQUEL [Suspect]
     Dosage: 25 MG TO 200 MG
     Route: 048
     Dates: start: 20030114
  5. HALDOL [Concomitant]
  6. ZOLOFT [Concomitant]
  7. DEPAKOTE SPR / DEPAKOTE ER [Concomitant]
     Dosage: 125 MG TO 750 MG QHS
     Dates: start: 20021015
  8. RISPERDAL [Concomitant]
     Dates: start: 20021107
  9. ALLEGRA [Concomitant]
     Dates: start: 20030107
  10. TOPAMAX [Concomitant]
     Dosage: 25 MG DAILY TO 400 MG DAILY
     Dates: start: 20030505
  11. TENEX [Concomitant]
     Dates: start: 20030505
  12. GEODON [Concomitant]
     Dates: start: 20050204
  13. ATIVAN [Concomitant]
     Dates: start: 20041229
  14. ENALAPRIL MALEATE [Concomitant]
     Dates: start: 20050121
  15. CLONAZEPAM [Concomitant]
     Dates: start: 20050121
  16. METHADONE HCL [Concomitant]
     Dates: start: 20041129
  17. BENADRYL [Concomitant]
     Dates: start: 20041129

REACTIONS (8)
  - ALANINE AMINOTRANSFERASE INCREASED [None]
  - ASPARTATE AMINOTRANSFERASE INCREASED [None]
  - CONGENITAL PANCREATIC ANOMALY [None]
  - DEPRESSION [None]
  - MULTIPLE INJURIES [None]
  - PANCREATIC PSEUDOCYST [None]
  - PANCREATITIS [None]
  - PRODUCT QUALITY ISSUE [None]
